FAERS Safety Report 10046832 (Version 2)
Quarter: 2014Q2

REPORT INFORMATION
  Report Type: Report from Study
  Country: BR (occurrence: BR)
  Receive Date: 20140331
  Receipt Date: 20140604
  Transmission Date: 20141212
  Serious: No
  Sender: FDA-Public Use
  Company Number: PHHY2014BR037121

PATIENT
  Age: 35 Year
  Sex: Female
  Weight: 55 kg

DRUGS (4)
  1. GILENYA [Suspect]
     Indication: MULTIPLE SCLEROSIS
     Dosage: 0.5 MG, QD
     Route: 048
     Dates: start: 20140311
  2. CLONAZEPAM [Concomitant]
     Indication: ANXIETY
     Dosage: 2 MG, QD
     Dates: start: 2007
  3. AMITRIPTYLINE [Concomitant]
     Indication: ANXIETY
     Dosage: 25 MG, QD
     Dates: start: 2007
  4. SERTRALINE [Concomitant]
     Indication: ANXIETY
     Dates: start: 2013

REACTIONS (9)
  - Chest pain [Recovered/Resolved]
  - Somnolence [Recovered/Resolved]
  - Nausea [Recovered/Resolved]
  - Vomiting [Recovered/Resolved]
  - Hypoaesthesia [Recovered/Resolved]
  - Feeling abnormal [Recovered/Resolved]
  - Dyspnoea [Recovered/Resolved]
  - Diarrhoea [Recovered/Resolved]
  - Headache [Recovered/Resolved]
